FAERS Safety Report 22175279 (Version 6)
Quarter: 2023Q4

REPORT INFORMATION
  Report Type: Spontaneous
  Country: JP (occurrence: JP)
  Receive Date: 20230405
  Receipt Date: 20231206
  Transmission Date: 20240110
  Serious: Yes (Other)
  Sender: FDA-Public Use
  Company Number: JP-ASTELLAS-2023JP004140

PATIENT
  Age: 9 Decade
  Sex: Female

DRUGS (4)
  1. PADCEV [Suspect]
     Active Substance: ENFORTUMAB VEDOTIN-EJFV
     Indication: Transitional cell carcinoma
     Dosage: 1.25 MG/KG, THRICE MONTHLY
     Route: 041
     Dates: start: 20230126
  2. PADCEV [Suspect]
     Active Substance: ENFORTUMAB VEDOTIN-EJFV
     Dosage: 1.25 MG/KG, THRICE MONTHLY
     Route: 041
     Dates: start: 20230209, end: 20230406
  3. PADCEV [Suspect]
     Active Substance: ENFORTUMAB VEDOTIN-EJFV
     Route: 041
     Dates: start: 20230420
  4. FILGRASTIM [Concomitant]
     Active Substance: FILGRASTIM
     Indication: Myelosuppression
     Dosage: UNK UNK, UNKNOWN FREQ. ADMINISTERED TWICE OR THRICE
     Route: 065

REACTIONS (4)
  - Myelosuppression [Recovering/Resolving]
  - Malignant neoplasm progression [Not Recovered/Not Resolved]
  - Alopecia [Not Recovered/Not Resolved]
  - Inappropriate schedule of product administration [Unknown]

NARRATIVE: CASE EVENT DATE: 20230201
